FAERS Safety Report 16844246 (Version 1)
Quarter: 2019Q3

REPORT INFORMATION
  Report Type: Spontaneous
  Country: US (occurrence: US)
  Receive Date: 20190924
  Receipt Date: 20190924
  Transmission Date: 20191005
  Serious: No
  Sender: FDA-Public Use
  Company Number: US-TARO-2019TAR00607

PATIENT
  Sex: Female
  Weight: 39.91 kg

DRUGS (3)
  1. EPIDIOLEX [Concomitant]
     Active Substance: CANNABIDIOL
  2. FELBAMATE TABLETS 600 MG [Suspect]
     Active Substance: FELBAMATE
     Indication: EPILEPSY
     Dosage: 600 MG, 3X/DAY
     Route: 048
  3. FELBAMATE ORAL SUSPENSION USP 600 MG/5 ML [Suspect]
     Active Substance: FELBAMATE
     Indication: EPILEPSY
     Dosage: 600 MG, 3X/DAY
     Route: 048
     Dates: start: 2014

REACTIONS (3)
  - Wrong technique in product usage process [Not Recovered/Not Resolved]
  - Therapeutic product effect incomplete [Unknown]
  - Incorrect dose administered [Not Recovered/Not Resolved]

NARRATIVE: CASE EVENT DATE: 2014
